FAERS Safety Report 5318115-2 (Version None)
Quarter: 2007Q1

REPORT INFORMATION
  Report Type: 
  Country: None (occurrence: None)
  Receive Date: 20070201
  Receipt Date: 20060712
  Transmission Date: 20070707
  Serious: Yes (Hospitalization)
  Sender: FDA-Public Use
  Company Number: MEDI-0004780

PATIENT
  Age: 70 Year
  Sex: Male
  Weight: 82.5547 kg

DRUGS (12)
  1. ETHYOL [Suspect]
     Indication: CHEMOTHERAPY
     Dosage: 5 IN 5 D, SUBCUTANEOUS
     Route: 058
     Dates: start: 20060620
  2. ETHYOL [Suspect]
     Indication: RADIOTHERAPY
     Dosage: 5 IN 5 D, SUBCUTANEOUS
     Route: 058
     Dates: start: 20060620
  3. RADIATION THERAPY [Concomitant]
  4. UNKNOWN CHEMOTHERAPY DRUG [Concomitant]
  5. ZOFRAN [Concomitant]
  6. HYDROCHLOROTHIAZIDE [Concomitant]
  7. COZAAR [Concomitant]
  8. ATENOLOL [Concomitant]
  9. FLONASE [Concomitant]
  10. ASPIRIN [Concomitant]
  11. METFORMIN HCL [Concomitant]
  12. LEVAQUIN [Concomitant]

REACTIONS (8)
  - DYSPEPSIA [None]
  - HAEMOPHILUS INFECTION [None]
  - HERPES ZOSTER [None]
  - HYPERHIDROSIS [None]
  - HYPERTENSION [None]
  - NAUSEA [None]
  - PYREXIA [None]
  - RASH GENERALISED [None]
